FAERS Safety Report 19810448 (Version 1)
Quarter: 2021Q3

REPORT INFORMATION
  Report Type: Spontaneous
  Country: US (occurrence: US)
  Receive Date: 20210903
  Receipt Date: 20210903
  Transmission Date: 20211014
  Serious: Yes (Hospitalization)
  Sender: FDA-Public Use
  Company Number: None

PATIENT
  Age: 62 Year
  Sex: Male

DRUGS (2)
  1. MYCOPHENOLIC 180MG DR TAB [Suspect]
     Active Substance: MYCOPHENOLIC ACID
     Indication: RENAL TRANSPLANT
     Dosage: (540 MG)
     Route: 048
     Dates: start: 20210416
  2. TACROLIMUS 1MG CAP [Suspect]
     Active Substance: TACROLIMUS
     Indication: RENAL TRANSPLANT
     Dosage: ?          OTHER DOSE:4?3CAPS;OTHER FREQUENCY 4 CAPS:QAM? 3 CAPS QPM;?
     Route: 048
     Dates: start: 20210224

REACTIONS (2)
  - Nephrectomy [None]
  - Illness [None]

NARRATIVE: CASE EVENT DATE: 20210823
